FAERS Safety Report 4623062-5 (Version None)
Quarter: 2005Q1

REPORT INFORMATION
  Report Type: 
  Country: None (occurrence: None)
  Receive Date: 20050329
  Receipt Date: 20050314
  Transmission Date: 20050727
  Serious: Yes (Hospitalization)
  Sender: FDA-Public Use
  Company Number: 185596

PATIENT
  Age: 55 Year
  Sex: Female
  Weight: 104.3273 kg

DRUGS (12)
  1. AVONEX [Suspect]
     Indication: MULTIPLE SCLEROSIS
     Dosage: 30 UG; QW; IM
     Route: 030
     Dates: start: 19960101, end: 20030401
  2. AVONEX [Suspect]
     Indication: MULTIPLE SCLEROSIS
     Dosage: 30 UG; QW; IM
     Route: 030
     Dates: start: 20030501
  3. CLARITIN [Concomitant]
  4. ESTRADIOL [Concomitant]
  5. METAMUCIL-2 [Concomitant]
  6. CALCIUM GLUCONATE [Concomitant]
  7. MUSCLE RELAXER [Concomitant]
  8. KLONOPIN [Concomitant]
  9. AMANTADINE [Concomitant]
  10. REGULAR INSULIN [Concomitant]
  11. GLUCOPHAGE [Concomitant]
  12. GLIPIZIDE [Concomitant]

REACTIONS (8)
  - CHRONIC OBSTRUCTIVE PULMONARY DISEASE [None]
  - CONDITION AGGRAVATED [None]
  - CONJUNCTIVITIS [None]
  - DEPRESSION [None]
  - GASTROOESOPHAGEAL REFLUX DISEASE [None]
  - HYPERTENSION [None]
  - MULTIPLE SCLEROSIS [None]
  - NASOPHARYNGITIS [None]
